FAERS Safety Report 7767158-8 (Version None)
Quarter: 2011Q3

REPORT INFORMATION
  Report Type: 
  Country: None (occurrence: None)
  Receive Date: 20110919
  Receipt Date: 20110912
  Transmission Date: 20111222
  Serious: Yes (Death)
  Sender: FDA-Public Use
  Company Number: CIP-2011-00720

PATIENT

DRUGS (2)
  1. BEVACIZUMAB (BEVACIZUMAB) [Suspect]
     Indication: NON-SMALL CELL LUNG CANCER
     Dosage: (15 MG/KG, DAY 1  OF 21 DAY CYCLES, INTRAVENOUS
     Route: 042
  2. CARBOPLATIN [Suspect]
     Indication: NON-SMALL CELL LUNG CANCER
     Dosage: CONCENTRATION TI-ME CURVE = 5, INTRAVENOUS
     Route: 042

REACTIONS (1)
  - SEPSIS [None]
